FAERS Safety Report 9530822 (Version 1)
Quarter: 2013Q1

REPORT INFORMATION
  Report Type: Spontaneous
  Country: US (occurrence: None)
  Receive Date: 20130315
  Receipt Date: 20130315
  Transmission Date: 20140127
  Serious: No
  Sender: FDA-Public Use
  Company Number: US-JNJFOC-20121207726

PATIENT
  Sex: 0

DRUGS (2)
  1. MOTRIN (IBUPROFEN) FILM COATED TABLET [Suspect]
     Indication: PRODUCT USED FOR UNKNOWN INDICATION
  2. ADVIL (IBUPROFEN) UNSPECIFIED [Suspect]

REACTIONS (2)
  - Gastric ulcer [None]
  - Abdominal discomfort [None]
